FAERS Safety Report 10400711 (Version 1)
Quarter: 2014Q3

REPORT INFORMATION
  Report Type: Spontaneous
  Country: DE (occurrence: DE)
  Receive Date: 20140821
  Receipt Date: 20140821
  Transmission Date: 20150326
  Serious: Yes (Death, Other)
  Sender: FDA-Public Use
  Company Number: PHHY2014DE101200

PATIENT
  Age: 23 Year
  Sex: Female

DRUGS (3)
  1. CEFAZOLIN [Suspect]
     Active Substance: CEFAZOLIN
     Indication: MASTITIS
  2. CIPROFLOXACIN. [Suspect]
     Active Substance: CIPROFLOXACIN
  3. IMIPENEM [Suspect]
     Active Substance: IMIPENEM

REACTIONS (8)
  - Maternal exposure during pregnancy [Unknown]
  - Dyspnoea [Unknown]
  - Septic shock [Unknown]
  - Premature labour [Unknown]
  - Breast inflammation [Unknown]
  - Cerebral hypoperfusion [Fatal]
  - Vaginal haemorrhage [Unknown]
  - Drug ineffective [Unknown]
